FAERS Safety Report 21032200 (Version 1)
Quarter: 2022Q3

REPORT INFORMATION
  Report Type: Spontaneous
  Country: CH (occurrence: CH)
  Receive Date: 20220701
  Receipt Date: 20220701
  Transmission Date: 20221026
  Serious: Yes (Hospitalization, Other)
  Sender: FDA-Public Use
  Company Number: None

PATIENT
  Age: 60 Year
  Sex: Female

DRUGS (18)
  1. IBUPROFEN [Suspect]
     Active Substance: IBUPROFEN
     Indication: Product used for unknown indication
     Dosage: UNIT DOSE : 400 MG , FREQUENCY TIME : 3 DAYS
     Route: 048
     Dates: start: 202012, end: 202012
  2. CEFUROXIME [Suspect]
     Active Substance: CEFUROXIME
     Indication: Product used for unknown indication
     Dosage: UNIT DOSE : 1.5 G
     Route: 042
     Dates: start: 20201211, end: 202012
  3. PERFALGAN [Suspect]
     Active Substance: ACETAMINOPHEN
     Indication: Product used for unknown indication
     Dosage: UNIT DOSE : 1 G
     Route: 042
     Dates: start: 20201211, end: 202012
  4. DAFALGAN [Suspect]
     Active Substance: ACETAMINOPHEN
     Indication: Product used for unknown indication
     Dosage: UNIT DOSE : 1 G
     Route: 048
     Dates: start: 20201211, end: 202012
  5. XARELTO [Suspect]
     Active Substance: RIVAROXABAN
     Indication: Product used for unknown indication
     Dosage: UNIT DOSE : 10 MG
     Route: 048
     Dates: start: 202012, end: 202012
  6. CHIROCAINE [Suspect]
     Active Substance: LEVOBUPIVACAINE HYDROCHLORIDE
     Indication: Product used for unknown indication
     Dosage: UNIT DOSE : 100 MG
     Dates: start: 20201211, end: 202012
  7. BRIDION [Suspect]
     Active Substance: SUGAMMADEX
     Indication: Product used for unknown indication
     Dosage: UNIT DOSE : 200  MG
     Route: 042
     Dates: start: 20201211, end: 202012
  8. TRANEXAMIC ACID [Concomitant]
     Active Substance: TRANEXAMIC ACID
     Indication: Product used for unknown indication
     Dates: start: 20201211, end: 202012
  9. CANDESARTAN [Concomitant]
     Active Substance: CANDESARTAN
     Indication: Product used for unknown indication
  10. CANDESARTAN [Concomitant]
     Active Substance: CANDESARTAN
     Indication: Hypertension
  11. CLONIDINE [Concomitant]
     Active Substance: CLONIDINE
     Indication: Product used for unknown indication
     Dates: start: 20201211, end: 202012
  12. FENTANYL [Concomitant]
     Active Substance: FENTANYL
     Indication: Product used for unknown indication
     Dates: start: 20201211, end: 202012
  13. TORADOL [Concomitant]
     Active Substance: KETOROLAC TROMETHAMINE
     Indication: Product used for unknown indication
     Dates: start: 20201211, end: 202012
  14. LIDOCAINE HYDROCHLORIDE [Concomitant]
     Active Substance: LIDOCAINE HYDROCHLORIDE
     Indication: Product used for unknown indication
     Dates: start: 20201211, end: 202012
  15. PROPOFOL [Concomitant]
     Active Substance: PROPOFOL
     Indication: Product used for unknown indication
     Dates: start: 20201211, end: 20201211
  16. ROCURONIUM BROMIDE [Concomitant]
     Active Substance: ROCURONIUM BROMIDE
     Indication: Product used for unknown indication
     Dates: start: 20201211, end: 20201211
  17. NAROPIN [Concomitant]
     Active Substance: ROPIVACAINE HYDROCHLORIDE
     Indication: Product used for unknown indication
     Dates: start: 20201211, end: 202012
  18. METAMIZOLE [Concomitant]
     Active Substance: METAMIZOLE
     Indication: Product used for unknown indication
     Dates: start: 20201211, end: 202012

REACTIONS (3)
  - Cholestatic liver injury [Recovered/Resolved]
  - Normochromic normocytic anaemia [Recovered/Resolved]
  - Supraventricular tachycardia [Recovered/Resolved]

NARRATIVE: CASE EVENT DATE: 20201217
